FAERS Safety Report 7208692-9 (Version None)
Quarter: 2011Q1

REPORT INFORMATION
  Report Type: 
  Country: None (occurrence: None)
  Receive Date: 20110104
  Receipt Date: 20101217
  Transmission Date: 20110831
  Serious: No
  Sender: FDA-Public Use
  Company Number: US-PFIZER INC-2010174703

PATIENT
  Age: 75 Year
  Sex: Female

DRUGS (4)
  1. CLONIDINE [Suspect]
     Dosage: UNK
  2. VALSARTAN [Suspect]
     Dosage: UNK
  3. DILTIAZEM [Suspect]
     Dosage: UNK
  4. LIPITOR [Suspect]

REACTIONS (1)
  - MUSCLE SPASMS [None]
